FAERS Safety Report 13952903 (Version 1)
Quarter: 2017Q3

REPORT INFORMATION
  Report Type: Spontaneous
  Country: US (occurrence: US)
  Receive Date: 20170911
  Receipt Date: 20170911
  Transmission Date: 20171128
  Serious: No
  Sender: FDA-Public Use
  Company Number: US-TEVA-796547ACC

PATIENT
  Sex: Female

DRUGS (3)
  1. FENTANYL. [Suspect]
     Active Substance: FENTANYL
     Indication: BACK PAIN
     Route: 065
     Dates: start: 201706, end: 201707
  2. FENTANYL. [Suspect]
     Active Substance: FENTANYL
     Route: 065
  3. FENTANYL. [Suspect]
     Active Substance: FENTANYL
     Route: 065

REACTIONS (6)
  - Heart rate increased [Unknown]
  - Drug withdrawal syndrome [Unknown]
  - Feeling abnormal [Unknown]
  - Drug effect delayed [Unknown]
  - Fatigue [Unknown]
  - Anxiety [Unknown]

NARRATIVE: CASE EVENT DATE: 2017
